FAERS Safety Report 21465870 (Version 1)
Quarter: 2022Q4

REPORT INFORMATION
  Report Type: Spontaneous
  Country: US (occurrence: None)
  Receive Date: 20221015
  Receipt Date: 20221015
  Transmission Date: 20230113
  Serious: Yes (Other)
  Sender: FDA-Public Use
  Company Number: None

PATIENT
  Age: 62 Year
  Sex: Female
  Weight: 49.05 kg

DRUGS (3)
  1. IBUPROFEN [Suspect]
     Active Substance: IBUPROFEN
     Indication: Headache
     Dosage: OTHER QUANTITY : 2 TABLET(S);?FREQUENCY : AS NEEDED;?
     Route: 048
  2. IBUPROFEN [Suspect]
     Active Substance: IBUPROFEN
     Indication: Joint stiffness
  3. LEVOTHYROXINE [Concomitant]
     Active Substance: LEVOTHYROXINE

REACTIONS (3)
  - Muscle tightness [None]
  - Migraine [None]
  - Product quality issue [None]

NARRATIVE: CASE EVENT DATE: 20221014
